FAERS Safety Report 23882935 (Version 2)
Quarter: 2024Q3

REPORT INFORMATION
  Report Type: Report from Study
  Country: IL (occurrence: IL)
  Receive Date: 20240522
  Receipt Date: 20240717
  Transmission Date: 20241017
  Serious: No
  Sender: ABBVIE
  Company Number: IL-ABBVIE-5769156

PATIENT
  Age: 49 Year
  Sex: Female
  Weight: 74 kg

DRUGS (3)
  1. SKYRIZI [Suspect]
     Active Substance: RISANKIZUMAB-RZAA
     Indication: Psoriasis
     Dosage: 1  INJECTION?DURATION TEXT: PERMANENT DISCONTINUATION DUE TO AE
     Route: 058
     Dates: start: 20231022, end: 20240212
  2. ATORVASTATIN CALCIUM [Concomitant]
     Active Substance: ATORVASTATIN CALCIUM
     Indication: Hyperlipidaemia
     Dosage: FORM STRENGTH: 40 MILLIGRAM
     Route: 048
     Dates: start: 201703
  3. BEZAFIBRATE [Concomitant]
     Active Substance: BEZAFIBRATE
     Indication: Hyperlipidaemia
     Route: 048
     Dates: start: 202201

REACTIONS (1)
  - Hepatic enzyme increased [Unknown]
